FAERS Safety Report 17998787 (Version 1)
Quarter: 2020Q3

REPORT INFORMATION
  Report Type: Spontaneous
  Country: US (occurrence: US)
  Receive Date: 20200708
  Receipt Date: 20200708
  Transmission Date: 20201103
  Serious: Yes (Death)
  Sender: FDA-Public Use
  Company Number: None

PATIENT
  Age: 87 Year
  Sex: Male
  Weight: 100.2 kg

DRUGS (11)
  1. LEVOTHYROXINE 88MCG DAILY [Concomitant]
     Dates: start: 20200610, end: 20200611
  2. FUROSEMIDE 20 OR 40 MG [Concomitant]
     Dates: start: 20200601, end: 20200611
  3. REMDESIVIR. [Suspect]
     Active Substance: REMDESIVIR
     Indication: COVID-19
     Dosage: ?          OTHER FREQUENCY:ONE TIME;?
     Route: 042
     Dates: start: 20200601, end: 20200601
  4. AZITHROMYCIN 500MG DAILY [Concomitant]
     Active Substance: AZITHROMYCIN
     Dates: start: 20200530, end: 20200601
  5. ESCITALOPRAM 20 MG DAILY [Concomitant]
     Active Substance: ESCITALOPRAM OXALATE
     Dates: start: 20200601, end: 20200611
  6. ENOXAPARIN 40 MG DAILY [Concomitant]
     Dates: start: 20200601, end: 20200609
  7. CEFTRIAXONE 2 GM DAILY [Concomitant]
     Dates: start: 20200530, end: 20200609
  8. ASPIRIN 325 MG DAILY [Concomitant]
     Dates: start: 20200601, end: 20200611
  9. CARVEDIOL 25MG BID [Concomitant]
     Dates: start: 20200603, end: 20200603
  10. REMDESIVIR. [Suspect]
     Active Substance: REMDESIVIR
     Indication: COVID-19
     Route: 042
     Dates: start: 20200602, end: 20200605
  11. ENOXAPARIN 40 MG BID [Concomitant]
     Dates: start: 20200609, end: 20200611

REACTIONS (1)
  - Death [None]

NARRATIVE: CASE EVENT DATE: 20200611
